FAERS Safety Report 4422777-1 (Version None)
Quarter: 2004Q3

REPORT INFORMATION
  Report Type: 
  Country: None (occurrence: None)
  Receive Date: 20040719
  Receipt Date: 20030905
  Transmission Date: 20050211
  Serious: Yes (Hospitalization)
  Sender: FDA-Public Use
  Company Number: M03-INT-092

PATIENT
  Age: 74 Year
  Sex: Male
  Weight: 74 kg

DRUGS (9)
  1. INTEGRILIN [Suspect]
     Indication: CORONARY ANGIOPLASTY
     Route: 040
     Dates: start: 20030610
  2. INTEGRILIN [Suspect]
     Indication: CORONARY ANGIOPLASTY
     Route: 040
     Dates: start: 20030610
  3. INTEGRILIN [Suspect]
     Indication: CORONARY ANGIOPLASTY
     Route: 040
     Dates: start: 20030702
  4. LOVENOX SOLUTION (EXCEPT SYRUP) [Concomitant]
  5. PLAVIX [Concomitant]
  6. ALTACE [Concomitant]
  7. TOPROL-XL [Concomitant]
  8. ASPIRIN [Concomitant]
  9. ZOCOR [Concomitant]

REACTIONS (2)
  - PETECHIAE [None]
  - THROMBOCYTOPENIA [None]
